FAERS Safety Report 5401538-0 (Version None)
Quarter: 2007Q3

REPORT INFORMATION
  Report Type: 
  Country: None (occurrence: None)
  Receive Date: 20070731
  Receipt Date: 20070722
  Transmission Date: 20080115
  Serious: Yes (Hospitalization)
  Sender: FDA-Public Use
  Company Number: GB-ROCHE-508920

PATIENT
  Age: 63 Year
  Sex: Female
  Weight: 66.7 kg

DRUGS (1)
  1. XENICAL [Suspect]
     Indication: OBESITY
     Route: 048
     Dates: start: 20070114, end: 20070606

REACTIONS (1)
  - KNEE ARTHROPLASTY [None]
